FAERS Safety Report 6266253-2 (Version None)
Quarter: 2009Q3

REPORT INFORMATION
  Report Type: 
  Country: None (occurrence: None)
  Receive Date: 20090713
  Receipt Date: 20090617
  Transmission Date: 20100115
  Serious: Yes (Hospitalization)
  Sender: FDA-Public Use
  Company Number: NZ-AVENTIS-200916623GDDC

PATIENT
  Age: 59 Year
  Sex: Female

DRUGS (5)
  1. LEFLUNOMIDE [Suspect]
     Route: 048
     Dates: start: 20020917, end: 20020924
  2. RANITIDINE [Concomitant]
     Route: 048
     Dates: start: 19880101
  3. PREDNISONE [Concomitant]
     Route: 048
     Dates: start: 19940101
  4. CALCITRIOL [Concomitant]
     Route: 048
     Dates: start: 19940101
  5. FOLIC ACID [Concomitant]
     Route: 048
     Dates: start: 19940101

REACTIONS (5)
  - DIARRHOEA [None]
  - HEPATIC ENZYME INCREASED [None]
  - NEUTROPENIA [None]
  - THROMBOCYTOPENIA [None]
  - VOMITING [None]
